FAERS Safety Report 14067229 (Version 3)
Quarter: 2017Q4

REPORT INFORMATION
  Report Type: Report from Study
  Country: AU (occurrence: AU)
  Receive Date: 20171009
  Receipt Date: 20171215
  Transmission Date: 20180321
  Serious: Yes (Other)
  Sender: FDA-Public Use
  Company Number: AU-REGENERON PHARMACEUTICALS, INC.-2017-23614

PATIENT

DRUGS (1)
  1. EYLEA [Suspect]
     Active Substance: AFLIBERCEPT
     Indication: NEOVASCULAR AGE-RELATED MACULAR DEGENERATION
     Dosage: 2 MONTHLY
     Route: 031
     Dates: start: 20170522

REACTIONS (2)
  - Cyst [Recovering/Resolving]
  - Pain [Unknown]

NARRATIVE: CASE EVENT DATE: 2017
